FAERS Safety Report 26100283 (Version 1)
Quarter: 2025Q4

REPORT INFORMATION
  Report Type: Spontaneous
  Country: JP (occurrence: JP)
  Receive Date: 20251128
  Receipt Date: 20251128
  Transmission Date: 20260117
  Serious: Yes (Other)
  Sender: ALEXION PHARMACEUTICALS
  Company Number: JP-ASTRAZENECA-202511JPN019141JP

PATIENT
  Age: 53 Year
  Sex: Female
  Weight: 43.7 kg

DRUGS (7)
  1. FASLODEX [Suspect]
     Active Substance: FULVESTRANT
     Indication: Breast cancer metastatic
     Dosage: 500 MILLIGRAM, QD
     Dates: start: 20250815, end: 20250815
  2. FASLODEX [Suspect]
     Active Substance: FULVESTRANT
  3. TRUQAP [Suspect]
     Active Substance: CAPIVASERTIB
     Indication: Breast cancer metastatic
     Dosage: 400 MILLIGRAM, BID
     Dates: start: 20250815, end: 20250822
  4. PERINDOPRIL [Concomitant]
     Active Substance: PERINDOPRIL
     Dosage: 2 MILLIGRAM, QD
     Route: 065
  5. BISOPROLOL FUMARATE [Concomitant]
     Active Substance: BISOPROLOL FUMARATE
     Dosage: 4 TABLETS IN 2 DIVIDED DOSES, 2TABLETS IN 2 DIVIDED DOSES
     Route: 065
  6. ALDACTONE [Concomitant]
     Active Substance: SPIRONOLACTONE
     Dosage: 25 MILLIGRAM, QD
     Route: 065
  7. JARDIANCE [Concomitant]
     Active Substance: EMPAGLIFLOZIN
     Dosage: 10 MILLIGRAM, QD
     Route: 065

REACTIONS (1)
  - Drug eruption [Recovering/Resolving]

NARRATIVE: CASE EVENT DATE: 20250824
